FAERS Safety Report 9444365 (Version 2)
Quarter: 2013Q3

REPORT INFORMATION
  Report Type: Report from Study
  Country: US (occurrence: US)
  Receive Date: 20130807
  Receipt Date: 20130826
  Transmission Date: 20140515
  Serious: Yes (Hospitalization)
  Sender: FDA-Public Use
  Company Number: US-JNJFOC-20130801452

PATIENT
  Age: 62 Year
  Sex: Male
  Weight: 110.68 kg

DRUGS (2)
  1. USTEKINUMAB [Suspect]
     Indication: PSORIASIS
     Route: 065
     Dates: start: 201110
  2. STEROIDS NOS [Concomitant]
     Route: 061

REACTIONS (1)
  - Blood count abnormal [Not Recovered/Not Resolved]
